FAERS Safety Report 5034249-4 (Version None)
Quarter: 2006Q2

REPORT INFORMATION
  Report Type: 
  Country: None (occurrence: None)
  Receive Date: 20060621
  Receipt Date: 20060612
  Transmission Date: 20061013
  Serious: Yes (Death)
  Sender: FDA-Public Use
  Company Number: 163-20785-04120053

PATIENT
  Age: 76 Year
  Sex: Female

DRUGS (9)
  1. THALOMID [Suspect]
     Indication: MULTIPLE MYELOMA
     Dosage: 50 - 200 MG, QD, ORAL
     Route: 048
     Dates: start: 20040920, end: 20051104
  2. THALOMID [Suspect]
  3. THALOMID [Suspect]
  4. LANOXIN [Concomitant]
  5. TENORMIN [Concomitant]
  6. CELEBREX [Concomitant]
  7. LIPITOR [Concomitant]
  8. ATIVAN [Concomitant]
  9. SYNTHROID [Concomitant]

REACTIONS (3)
  - BRADYCARDIA [None]
  - DISEASE PROGRESSION [None]
  - HYPOAESTHESIA [None]
